FAERS Safety Report 24904090 (Version 1)
Quarter: 2025Q1

REPORT INFORMATION
  Report Type: Spontaneous
  Country: CA (occurrence: CA)
  Receive Date: 20250130
  Receipt Date: 20250130
  Transmission Date: 20250408
  Serious: Yes (Hospitalization)
  Sender: BAUSCH AND LOMB
  Company Number: CA-BAUSCH-BL-2025-001195

PATIENT
  Age: 71 Year
  Sex: Female
  Weight: 209 kg

DRUGS (7)
  1. ALBUTEROL SULFATE [Suspect]
     Active Substance: ALBUTEROL SULFATE
     Indication: Product used for unknown indication
     Route: 065
  2. ALBUTEROL SULFATE [Suspect]
     Active Substance: ALBUTEROL SULFATE
     Route: 065
  3. NUCALA [Suspect]
     Active Substance: MEPOLIZUMAB
     Indication: Asthma
     Route: 058
  4. PREDNISONE [Suspect]
     Active Substance: PREDNISONE
     Indication: Asthma
     Route: 065
  5. SPIRIVA [Suspect]
     Active Substance: TIOTROPIUM BROMIDE MONOHYDRATE
     Indication: Product used for unknown indication
     Route: 065
  6. ZENHALE [Suspect]
     Active Substance: FORMOTEROL FUMARATE\MOMETASONE FUROATE
     Indication: Product used for unknown indication
     Dosage: AEROSOL, METERED DOSE
     Route: 065
  7. WIXELA INHUB [Concomitant]
     Active Substance: FLUTICASONE PROPIONATE\SALMETEROL XINAFOATE
     Indication: Product used for unknown indication
     Route: 065

REACTIONS (7)
  - Loss of personal independence in daily activities [Recovered/Resolved]
  - Sleep disorder due to a general medical condition [Recovered/Resolved]
  - Asthma [Recovered/Resolved]
  - Dyspnoea [Recovered/Resolved]
  - Obstructive airways disorder [Recovered/Resolved]
  - Wheezing [Recovered/Resolved]
  - Therapeutic product effect incomplete [Recovered/Resolved]
